FAERS Safety Report 4583922-0 (Version None)
Quarter: 2005Q1

REPORT INFORMATION
  Report Type: 
  Country: None (occurrence: None)
  Receive Date: 20050211
  Receipt Date: 20050201
  Transmission Date: 20050727
  Serious: Yes (Death, Hospitalization)
  Sender: FDA-Public Use
  Company Number: SEWYE190610NOV04

PATIENT
  Age: 42 Year
  Sex: Female

DRUGS (3)
  1. EFFEXOR [Suspect]
     Dosage: 150 MG 1X PER 1 DAY, ORAL
     Route: 048
     Dates: start: 19980101, end: 20040827
  2. ASPIRIN [Concomitant]
  3. ATENOLOL [Concomitant]

REACTIONS (12)
  - BRADYCARDIA [None]
  - CARDIAC ARREST [None]
  - CHEST PAIN [None]
  - ELECTROCARDIOGRAM ST SEGMENT ABNORMAL [None]
  - ELECTROMECHANICAL DISSOCIATION [None]
  - HEPATIC STEATOSIS [None]
  - HEPATOMEGALY [None]
  - MUSCLE SPASMS [None]
  - MYOCARDITIS [None]
  - SYNCOPE [None]
  - VENTRICULAR FIBRILLATION [None]
  - VENTRICULAR TACHYCARDIA [None]
